FAERS Safety Report 12528827 (Version 1)
Quarter: 2016Q3

REPORT INFORMATION
  Report Type: Spontaneous
  Country: US (occurrence: US)
  Receive Date: 20160705
  Receipt Date: 20160705
  Transmission Date: 20161109
  Serious: Yes (Hospitalization)
  Sender: FDA-Public Use
  Company Number: US-SA-2016SA121796

PATIENT
  Age: 69 Year
  Sex: Male
  Weight: 88.1 kg

DRUGS (4)
  1. FLUDARA [Suspect]
     Active Substance: FLUDARABINE PHOSPHATE
     Indication: ACUTE MYELOID LEUKAEMIA
     Route: 042
     Dates: start: 20160227, end: 20160229
  2. IDARUBICIN [Concomitant]
     Active Substance: IDARUBICIN
     Indication: ACUTE MYELOID LEUKAEMIA
     Dates: start: 20160228, end: 20160301
  3. MYLOTARG [Concomitant]
     Active Substance: GEMTUZUMAB OZOGAMICIN
     Dosage: ROUTE: IVPB
     Dates: start: 20160302, end: 20160302
  4. CYTARABINE. [Concomitant]
     Active Substance: CYTARABINE
     Indication: ACUTE MYELOID LEUKAEMIA
     Route: 042
     Dates: start: 20160228, end: 20160301

REACTIONS (2)
  - Febrile neutropenia [Recovered/Resolved]
  - Escherichia bacteraemia [Recovering/Resolving]

NARRATIVE: CASE EVENT DATE: 20160309
